FAERS Safety Report 7508606-8 (Version None)
Quarter: 2011Q2

REPORT INFORMATION
  Report Type: 
  Country: None (occurrence: None)
  Receive Date: 20110527
  Receipt Date: 20110107
  Transmission Date: 20111010
  Serious: No
  Sender: FDA-Public Use
  Company Number: A0905635A

PATIENT
  Age: 65 Year
  Sex: Female
  Weight: 49.5 kg

DRUGS (15)
  1. METFORMIN HCL [Concomitant]
     Dosage: 1000MG TWICE PER DAY
     Route: 048
  2. NEXIUM [Concomitant]
     Dosage: 40MG PER DAY
  3. FERROUS SULFATE TAB [Concomitant]
     Dosage: 325MG THREE TIMES PER DAY
     Route: 048
  4. HEPARIN [Concomitant]
  5. PREDNISONE [Concomitant]
     Dosage: 10MG PER DAY
  6. TRACLEER [Concomitant]
     Dosage: 125MG TWICE PER DAY
     Route: 048
  7. MULTI-VITAMIN [Concomitant]
  8. LEXAPRO [Concomitant]
     Dosage: 20MG PER DAY
     Route: 048
  9. OXYGEN [Concomitant]
  10. BUMEX [Concomitant]
     Dosage: 4MG TWICE PER DAY
     Route: 048
  11. CALCIUM + VITAMIN D [Concomitant]
     Dosage: 1TAB PER DAY
     Route: 048
  12. MAGNESIUM SULFATE [Concomitant]
     Dosage: 800MG PER DAY
     Route: 048
  13. ZOCOR [Concomitant]
     Dosage: 40MG PER DAY
  14. FLOLAN [Suspect]
     Indication: PULMONARY ARTERIAL HYPERTENSION
     Route: 065
     Dates: start: 20090729
  15. POTASSIUM CHLORIDE [Concomitant]
     Dosage: 60MEQ FOUR TIMES PER DAY

REACTIONS (3)
  - DIARRHOEA [None]
  - RASH PAPULAR [None]
  - RHINORRHOEA [None]
